FAERS Safety Report 7265585-9 (Version None)
Quarter: 2011Q1

REPORT INFORMATION
  Report Type: 
  Country: None (occurrence: None)
  Receive Date: 20110131
  Receipt Date: 20110118
  Transmission Date: 20110831
  Serious: Yes (Hospitalization, Disabling)
  Sender: FDA-Public Use
  Company Number: US-CELGENEUS-163-21880-10100286

PATIENT
  Sex: Male

DRUGS (30)
  1. REVLIMID [Suspect]
     Indication: MULTIPLE MYELOMA
     Route: 048
     Dates: start: 20100512, end: 20100809
  2. VELCADE [Suspect]
     Route: 065
     Dates: end: 20100809
  3. LOMOTIL [Concomitant]
     Route: 065
  4. IRON [Concomitant]
     Route: 065
  5. FOLIC ACID [Concomitant]
     Route: 065
  6. DEXAMETHASONE [Suspect]
     Route: 065
  7. FLUCONAZOLE [Concomitant]
     Route: 065
  8. MAGNESIUM OXIDE [Concomitant]
     Route: 065
  9. POTASSIUM CHLORIDE [Concomitant]
     Route: 065
  10. NEUPOGEN [Concomitant]
     Route: 065
  11. MORPHINE [Concomitant]
     Indication: PAIN MANAGEMENT
     Route: 048
     Dates: start: 20101108
  12. OXYCODONE HCL EXTENDED-RELEASE [Concomitant]
     Route: 065
  13. VELCADE [Suspect]
     Route: 065
     Dates: start: 20100831, end: 20100910
  14. OXYCONTIN [Concomitant]
     Indication: PAIN
     Dosage: 5
     Route: 065
  15. ZOMETA [Concomitant]
     Route: 065
  16. FLEXERIL [Concomitant]
     Route: 065
  17. AMITRIPTYLINE HCL [Concomitant]
     Route: 065
  18. MULTI-VITAMINS [Concomitant]
     Dosage: 1
     Route: 065
  19. VITAMIN B-12 [Concomitant]
     Route: 065
  20. MORPHINE [Concomitant]
     Route: 051
     Dates: start: 20101108
  21. LEVAQUIN [Concomitant]
     Route: 048
  22. ZOFRAN [Concomitant]
     Indication: NAUSEA
     Route: 065
  23. FLOMAX [Concomitant]
     Route: 065
  24. REVLIMID [Suspect]
     Route: 048
     Dates: start: 20100831, end: 20100907
  25. ANTIBIOTICS [Concomitant]
     Route: 065
  26. METAMUCIL-2 [Concomitant]
     Route: 065
  27. ASPIRIN [Concomitant]
     Route: 065
  28. CODEINE [Concomitant]
     Indication: PAIN
     Route: 065
  29. NEOMYCIN [Concomitant]
     Route: 065
  30. AMLODIPINE [Concomitant]
     Route: 065

REACTIONS (5)
  - DIARRHOEA [None]
  - NEUROPATHY PERIPHERAL [None]
  - BACK PAIN [None]
  - DIZZINESS POSTURAL [None]
  - ADDISON'S DISEASE [None]
